FAERS Safety Report 5796692-5 (Version None)
Quarter: 2008Q2

REPORT INFORMATION
  Report Type: 
  Country: None (occurrence: None)
  Receive Date: 20080630
  Receipt Date: 20080630
  Transmission Date: 20081010
  Serious: Yes (Other)
  Sender: FDA-Public Use
  Company Number: None

PATIENT
  Age: 46 Year
  Sex: Female
  Weight: 81.6475 kg

DRUGS (2)
  1. SEROQUEL [Suspect]
     Indication: INSOMNIA
     Dosage: 100 MG BEDTIME PO
     Route: 048
     Dates: start: 20050701, end: 20080625
  2. SEROQUEL [Suspect]
     Indication: MANIA
     Dosage: 100 MG BEDTIME PO
     Route: 048
     Dates: start: 20050701, end: 20080625

REACTIONS (1)
  - GLUCOSE TOLERANCE IMPAIRED [None]
